FAERS Safety Report 4977321-7 (Version None)
Quarter: 2006Q2

REPORT INFORMATION
  Report Type: 
  Country: None (occurrence: None)
  Receive Date: 20060419
  Receipt Date: 20060407
  Transmission Date: 20061013
  Serious: Yes (Hospitalization)
  Sender: FDA-Public Use
  Company Number: US-MERCK-0604USA02618

PATIENT
  Age: 67 Year
  Sex: Male

DRUGS (1)
  1. VIOXX [Suspect]
     Route: 048
     Dates: start: 20001201, end: 20010801

REACTIONS (11)
  - CHEST PAIN [None]
  - DIZZINESS [None]
  - ECZEMA [None]
  - GAMMOPATHY [None]
  - HAEMORRHAGIC STROKE [None]
  - HEMIANOPIA [None]
  - HYPERSENSITIVITY [None]
  - HYPERTENSION [None]
  - HYPERTRIGLYCERIDAEMIA [None]
  - REFLUX GASTRITIS [None]
  - VISUAL DISTURBANCE [None]
